FAERS Safety Report 23218731 (Version 1)
Quarter: 2023Q4

REPORT INFORMATION
  Report Type: Spontaneous
  Country: US (occurrence: US)
  Receive Date: 20231122
  Receipt Date: 20231122
  Transmission Date: 20240110
  Serious: Yes (Life-Threatening, Hospitalization, Other)
  Sender: FDA-Public Use
  Company Number: US-BRISTOL-MYERS SQUIBB COMPANY-2023-165994

PATIENT
  Age: 82 Year
  Sex: Male

DRUGS (1)
  1. ELIQUIS [Suspect]
     Active Substance: APIXABAN
     Indication: Atrial fibrillation
     Dosage: FREQUENCY: TWICE A DAY
     Route: 048
     Dates: end: 2023

REACTIONS (7)
  - Aplastic anaemia [Unknown]
  - Haemoglobin decreased [Recovering/Resolving]
  - Pneumonia [Unknown]
  - T-lymphocyte count abnormal [Unknown]
  - Liver disorder [Recovering/Resolving]
  - COVID-19 [Unknown]
  - Pleural effusion [Recovering/Resolving]

NARRATIVE: CASE EVENT DATE: 20211201
